FAERS Safety Report 9903284 (Version 1)
Quarter: 2014Q1

REPORT INFORMATION
  Report Type: Spontaneous
  Country: US (occurrence: US)
  Receive Date: 20140217
  Receipt Date: 20140217
  Transmission Date: 20141002
  Serious: No
  Sender: FDA-Public Use
  Company Number: US-ASTRAZENECA-2013SE70633

PATIENT
  Sex: Female

DRUGS (1)
  1. TENORMIN [Suspect]
     Route: 048
     Dates: start: 2012

REACTIONS (2)
  - Hypersensitivity [Unknown]
  - Rash [Not Recovered/Not Resolved]
